FAERS Safety Report 18899941 (Version 4)
Quarter: 2025Q2

REPORT INFORMATION
  Report Type: Spontaneous
  Country: US (occurrence: US)
  Receive Date: 20210216
  Receipt Date: 20250425
  Transmission Date: 20250716
  Serious: No
  Sender: PFIZER
  Company Number: US-PFIZER INC-2019520634

PATIENT
  Age: 80 Year
  Sex: Female

DRUGS (7)
  1. VYNDAMAX [Suspect]
     Active Substance: TAFAMIDIS
     Indication: Acquired ATTR amyloidosis
     Dates: start: 20191002, end: 201910
  2. VYNDAMAX [Suspect]
     Active Substance: TAFAMIDIS
     Dates: start: 20191030
  3. CHOLECALCIFEROL [Concomitant]
     Active Substance: CHOLECALCIFEROL
  4. CITALOPRAM [Concomitant]
     Active Substance: CITALOPRAM
  5. DONEPEZIL [Concomitant]
     Active Substance: DONEPEZIL
  6. METOPROLOL [Concomitant]
     Active Substance: METOPROLOL
  7. LATANOPROST\TIMOLOL [Concomitant]
     Active Substance: LATANOPROST\TIMOLOL

REACTIONS (3)
  - Pruritus [Unknown]
  - Swollen tongue [Unknown]
  - Glossodynia [Unknown]

NARRATIVE: CASE EVENT DATE: 20200101
